FAERS Safety Report 20775397 (Version 1)
Quarter: 2022Q2

REPORT INFORMATION
  Report Type: Spontaneous
  Country: FR (occurrence: FR)
  Receive Date: 20220502
  Receipt Date: 20220502
  Transmission Date: 20220721
  Serious: Yes (Other)
  Sender: FDA-Public Use
  Company Number: FR-EAGLE PHARMACEUTICALS, INC.-FR-2022EAG000143

PATIENT
  Age: 75 Year
  Sex: Male

DRUGS (4)
  1. BENDAMUSTINE HYDROCHLORIDE [Suspect]
     Active Substance: BENDAMUSTINE HYDROCHLORIDE
     Indication: Chronic lymphocytic leukaemia
     Dosage: UNK, (CYCLE 1 BR THERAPY)
     Route: 065
     Dates: start: 201411
  2. BENDAMUSTINE HYDROCHLORIDE [Suspect]
     Active Substance: BENDAMUSTINE HYDROCHLORIDE
     Dosage: UNK, (CYCLE 2 BR THERAPY)
     Route: 065
  3. RITUXIMAB [Suspect]
     Active Substance: RITUXIMAB
     Indication: Chronic lymphocytic leukaemia
     Dosage: UNK, (CYCLE 1 BR THERAPY)
     Route: 065
     Dates: start: 201411
  4. RITUXIMAB [Suspect]
     Active Substance: RITUXIMAB
     Dosage: UNK, (CYCLE 2 BR THERAPY)
     Route: 065

REACTIONS (2)
  - Polyarthritis [Unknown]
  - Pyrexia [Unknown]
